FAERS Safety Report 8559823-X (Version None)
Quarter: 2012Q3

REPORT INFORMATION
  Report Type: 
  Country: None (occurrence: None)
  Receive Date: 20120802
  Receipt Date: 20120731
  Transmission Date: 20120928
  Serious: Yes (Other)
  Sender: FDA-Public Use
  Company Number: US-PFIZER INC-2012186767

PATIENT
  Sex: Female
  Weight: 62.132 kg

DRUGS (5)
  1. CHANTIX [Suspect]
     Dosage: 1 MG, UNK
     Route: 048
     Dates: start: 20110101, end: 20110801
  2. METOPROLOL SUCCINATE [Concomitant]
     Indication: HYPERTENSION
     Dosage: 25 MG, DAILY
  3. CYMBALTA [Concomitant]
     Dosage: 60 MG, DAILY
  4. CHANTIX [Suspect]
     Indication: SMOKING CESSATION THERAPY
     Dosage: 0.5 MG, UNK
     Route: 048
     Dates: start: 20110101, end: 20110101
  5. AMLODIPINE [Concomitant]
     Indication: HYPERTENSION
     Dosage: 40 MG, DAILY

REACTIONS (2)
  - DEPRESSION [None]
  - ABNORMAL DREAMS [None]
